FAERS Safety Report 7968584-4 (Version None)
Quarter: 2011Q4

REPORT INFORMATION
  Report Type: 
  Country: None (occurrence: None)
  Receive Date: 20111209
  Receipt Date: 20111128
  Transmission Date: 20120403
  Serious: Yes (Other)
  Sender: FDA-Public Use
  Company Number: US-JNJFOC-20111111813

PATIENT
  Sex: Female

DRUGS (1)
  1. REMICADE [Suspect]
     Indication: PRODUCT USED FOR UNKNOWN INDICATION
     Route: 065

REACTIONS (10)
  - SLEEP DISORDER [None]
  - CARDIAC DISORDER [None]
  - INFECTION [None]
  - SKIN DISORDER [None]
  - MUSCLE RUPTURE [None]
  - MALAISE [None]
  - THYROIDECTOMY [None]
  - FIBROMYALGIA [None]
  - IMMUNE SYSTEM DISORDER [None]
  - TACHYCARDIA [None]
